FAERS Safety Report 6474692-X (Version None)
Quarter: 2009Q4

REPORT INFORMATION
  Report Type: 
  Country: None (occurrence: None)
  Receive Date: 20091204
  Receipt Date: 20091201
  Transmission Date: 20100525
  Serious: Yes (Hospitalization, Congenital Anomaly)
  Sender: FDA-Public Use
  Company Number: A0748057A

PATIENT
  Sex: Male
  Weight: 2.8 kg

DRUGS (5)
  1. PAXIL [Suspect]
     Indication: DEPRESSION
     Dosage: 40MG PER DAY
     Dates: start: 20000101
  2. ZOFRAN [Concomitant]
  3. LANTUS [Concomitant]
  4. NOVOLOG [Concomitant]
  5. NIFEDIPINE [Concomitant]

REACTIONS (10)
  - BRAIN INJURY [None]
  - CEREBRAL PALSY [None]
  - COMA [None]
  - DEAFNESS [None]
  - DEVELOPMENTAL DELAY [None]
  - DRUG EXPOSURE DURING PREGNANCY [None]
  - EPILEPSY [None]
  - PERIVENTRICULAR LEUKOMALACIA [None]
  - PULMONARY MALFORMATION [None]
  - TUNNEL VISION [None]
